FAERS Safety Report 24129970 (Version 1)
Quarter: 2024Q3

REPORT INFORMATION
  Report Type: Spontaneous
  Country: US (occurrence: US)
  Receive Date: 20240724
  Receipt Date: 20240724
  Transmission Date: 20241017
  Serious: Yes (Hospitalization)
  Sender: OTSUKA
  Company Number: US-OTSUKA-2024_006773

PATIENT
  Sex: Female

DRUGS (1)
  1. INQOVI [Suspect]
     Active Substance: CEDAZURIDINE\DECITABINE
     Indication: Product used for unknown indication
     Dosage: UNK (35 MG DECITABINE AND 100 MG CEDAZURIDINE) 2 DOSES
     Route: 065

REACTIONS (1)
  - Pain [Unknown]
